FAERS Safety Report 7009418-4 (Version None)
Quarter: 2010Q3

REPORT INFORMATION
  Report Type: 
  Country: None (occurrence: None)
  Receive Date: 20100923
  Receipt Date: 20100916
  Transmission Date: 20110219
  Serious: Yes (Hospitalization)
  Sender: FDA-Public Use
  Company Number: US-BAYER-201020109BCC

PATIENT
  Age: 70 Year
  Sex: Male
  Weight: 79 kg

DRUGS (27)
  1. ASPIRIN [Suspect]
     Indication: PRODUCT USED FOR UNKNOWN INDICATION
     Dosage: TOTAL DAILY DOSE: 325 MG  UNIT DOSE: 325 MG
     Route: 048
  2. PLAVIX [Suspect]
     Indication: STENT PLACEMENT
     Route: 048
     Dates: start: 20090101
  3. PLAVIX [Suspect]
     Route: 048
  4. PLAVIX [Suspect]
     Dosage: TOTAL DAILY DOSE: 300 MG  UNIT DOSE: 150 MG
     Route: 048
  5. COUMADIN [Suspect]
     Indication: PRODUCT USED FOR UNKNOWN INDICATION
     Dosage: TOTAL DAILY DOSE: 1 MG  UNIT DOSE: 1 MG
     Route: 065
  6. COREG [Concomitant]
  7. SINGULAIR [Concomitant]
  8. PROTONIX [Concomitant]
  9. PERCOCET [Concomitant]
  10. LEVAQUIN [Concomitant]
  11. BENADRYL [Concomitant]
  12. MULTI-VITAMINS [Concomitant]
  13. FOLIC ACID [Concomitant]
  14. VITAMIN B [Concomitant]
  15. SPIRONOLACTONE [Concomitant]
  16. BUMEX [Concomitant]
  17. ADVAIR DISKUS 100/50 [Concomitant]
  18. LIPITOR [Concomitant]
  19. NASONEX [Concomitant]
  20. ALLEGRA D 24 HOUR [Concomitant]
  21. IPRATROPIUM BROMIDE/ SALBUTAMOL SULFATE [Concomitant]
  22. AMINOACETIC ACID / BENZALKONIUM CHLORIDE [Concomitant]
  23. OXYMETAZOLINE HYDROCHLORIDE / PHENYLMERCURIC [Concomitant]
  24. ACETATE / SORBITOL [Concomitant]
  25. LOSARTAN POTASSIUM [Concomitant]
  26. NITRGLYCERIN TRANSDERMAL SYSTEM [Concomitant]
  27. ZOCOR [Concomitant]

REACTIONS (13)
  - CHEST PAIN [None]
  - DYSPNOEA [None]
  - DYSPNOEA EXERTIONAL [None]
  - FATIGUE [None]
  - HYPERHIDROSIS [None]
  - HYPOTENSION [None]
  - PERIPHERAL ISCHAEMIA [None]
  - PNEUMONIA STREPTOCOCCAL [None]
  - PROCEDURAL HYPOTENSION [None]
  - SEPSIS [None]
  - THROMBOSIS IN DEVICE [None]
  - ULCER [None]
  - VASCULAR GRAFT THROMBOSIS [None]
